FAERS Safety Report 8777213 (Version 1)
Quarter: 2012Q4

REPORT INFORMATION
  Report Type: 
  Country: NL (occurrence: NL)
  Receive Date: 20120911
  Receipt Date: 20120911
  Transmission Date: 20130627
  Serious: Yes (Other)
  Sender: FDA-Public Use
  Company Number: NL-AMGEN-NLDSP2012056837

PATIENT
  Age: 74 Year
  Sex: Male

DRUGS (4)
  1. ENBREL [Suspect]
     Indication: RHEUMATOID ARTHRITIS
     Dosage: 50 mg, weekly
     Dates: start: 20110310, end: 20120621
  2. ENBREL [Suspect]
     Dosage: 50 mg, weekly
     Dates: start: 20120802
  3. MTX                                /00113801/ [Concomitant]
     Dosage: UNK UNK, UNK
  4. FOLIC ACID [Concomitant]
     Dosage: UNK UNK, UNK

REACTIONS (3)
  - Rheumatoid arthritis [Unknown]
  - Cough [Recovering/Resolving]
  - Upper respiratory tract infection [Recovering/Resolving]
